APPROVED DRUG PRODUCT: EVEROLIMUS
Active Ingredient: EVEROLIMUS
Strength: 0.5MG
Dosage Form/Route: TABLET;ORAL
Application: A216140 | Product #002 | TE Code: AB
Applicant: BIOCON PHARMA LTD
Approved: Apr 9, 2025 | RLD: No | RS: No | Type: RX